FAERS Safety Report 15575002 (Version 1)
Quarter: 2018Q4

REPORT INFORMATION
  Report Type: Spontaneous
  Country: US (occurrence: US)
  Receive Date: 20181101
  Receipt Date: 20181101
  Transmission Date: 20190205
  Serious: Yes (Other)
  Sender: FDA-Public Use
  Company Number: None

PATIENT
  Age: 63 Year
  Sex: Female
  Weight: 51.75 kg

DRUGS (1)
  1. SUPREP BOWEL PREP [Suspect]
     Active Substance: MAGNESIUM SULFATE\POTASSIUM SULFATE\SODIUM SULFATE
     Indication: BOWEL PREPARATION
     Dosage: ?          QUANTITY:6 OUNCE(S);?
     Route: 048

REACTIONS (8)
  - Chills [None]
  - Dizziness [None]
  - Nausea [None]
  - Feeling hot [None]
  - Asthenia [None]
  - Dysstasia [None]
  - Tremor [None]
  - Headache [None]

NARRATIVE: CASE EVENT DATE: 20181030
